FAERS Safety Report 5677334-6 (Version None)
Quarter: 2008Q1

REPORT INFORMATION
  Report Type: 
  Country: None (occurrence: None)
  Receive Date: 20080324
  Receipt Date: 20080317
  Transmission Date: 20080703
  Serious: Yes (Hospitalization)
  Sender: FDA-Public Use
  Company Number: US-GILEAD-2008-0015506

PATIENT
  Sex: Female
  Weight: 80.358 kg

DRUGS (20)
  1. TRUVADA [Suspect]
     Indication: HIV INFECTION
     Route: 048
     Dates: start: 20071004
  2. PREZISTA [Suspect]
     Indication: HIV INFECTION
     Route: 048
     Dates: start: 20070921
  3. INTELENCE [Suspect]
     Indication: HIV INFECTION
     Route: 048
     Dates: start: 20070921
  4. RITONAVIR [Suspect]
     Indication: HIV INFECTION
     Route: 048
     Dates: start: 20070921
  5. DDI EC [Suspect]
     Indication: HIV INFECTION
     Route: 048
     Dates: start: 20071004
  6. BACTRIM DS [Concomitant]
     Route: 054
     Dates: start: 20071215
  7. ROSUVASTATIN [Concomitant]
     Route: 048
     Dates: start: 20061031
  8. LISINOPRIL [Concomitant]
     Route: 048
     Dates: start: 20060501, end: 20080101
  9. BUPROPION HCL [Concomitant]
     Route: 048
     Dates: start: 20050601
  10. PROZAC [Concomitant]
     Route: 048
     Dates: start: 20050601
  11. ALBUTEROL [Concomitant]
     Route: 065
     Dates: start: 20061206
  12. ADVAIR DISKUS 100/50 [Concomitant]
     Route: 065
     Dates: start: 20061206
  13. ASPIRIN [Concomitant]
     Route: 048
     Dates: start: 20061031
  14. ESOMEPRAZOLE MAGNESIUM [Concomitant]
     Route: 048
     Dates: start: 20061206
  15. HYDROCHLOROTHIAZIDE [Concomitant]
     Route: 048
     Dates: start: 20060501
  16. CENTRUM SILVER [Concomitant]
     Route: 048
     Dates: start: 20070801
  17. ZOLPIDEM [Concomitant]
     Route: 048
     Dates: start: 20070701
  18. GABAPENTIN [Concomitant]
     Route: 048
     Dates: start: 20070924
  19. TYLENOL (CAPLET) [Concomitant]
     Dosage: 1 TABLET AS REQUIRED
     Route: 048
     Dates: start: 20070924
  20. LASIX [Concomitant]
     Route: 048
     Dates: start: 20071210

REACTIONS (16)
  - ATELECTASIS [None]
  - BLOOD PRESSURE DECREASED [None]
  - CANDIDIASIS [None]
  - CARDIAC TAMPONADE [None]
  - CARDIOMEGALY [None]
  - HAEMATOCRIT DECREASED [None]
  - HAEMOGLOBIN DECREASED [None]
  - LUNG CONSOLIDATION [None]
  - NEUTROPHIL PERCENTAGE INCREASED [None]
  - ORAL HAIRY LEUKOPLAKIA [None]
  - PERICARDIAL EFFUSION [None]
  - PLEURAL EFFUSION [None]
  - PNEUMONIA [None]
  - PULMONARY OEDEMA [None]
  - TACHYPNOEA [None]
  - WHITE BLOOD CELL COUNT INCREASED [None]
